FAERS Safety Report 8606257-5 (Version None)
Quarter: 2012Q3

REPORT INFORMATION
  Report Type: 
  Country: None (occurrence: None)
  Receive Date: 20120820
  Receipt Date: 20120813
  Transmission Date: 20120928
  Serious: Yes (Hospitalization)
  Sender: FDA-Public Use
  Company Number: US-ALEXION PHARMACEUTICALS INC.-A201201091

PATIENT
  Sex: Female
  Weight: 69.2 kg

DRUGS (31)
  1. ALLOPURINOL [Concomitant]
     Indication: GOUT
     Dosage: 300 MG, QD AT BEDTIME
     Route: 048
  2. CALCIUM WITH VITAMIN D [Concomitant]
     Dosage: 1 DF, BID
     Route: 048
  3. DICYCLOMINE [Concomitant]
     Dosage: 240 MG, TID
     Route: 048
  4. ARICEPT [Concomitant]
     Indication: DEMENTIA
     Dosage: 10 MG, QD
     Route: 048
  5. NORCO [Concomitant]
     Indication: PAIN
     Dosage: 5/325 1 TO 2 TABLETS Q6H
     Route: 048
  6. LEVOTHYROXINE SODIUM [Concomitant]
     Indication: HYPOTHYROIDISM
     Dosage: 0.2 MG, QD
     Route: 048
  7. VITAMIN B COMPLEX CAP [Concomitant]
     Dosage: 1 DF, QD BEDTIME
     Route: 048
  8. TRAMADOL HCL [Concomitant]
     Dosage: 50 MG, TID
     Route: 048
  9. RECLAST [Concomitant]
     Dosage: 5 MG ONCE YEARLY (AUGUST)
     Route: 042
  10. CARVEDILOL [Concomitant]
     Dosage: 25 MG, BID
     Route: 048
  11. SOLIRIS [Suspect]
     Indication: PAROXYSMAL NOCTURNAL HAEMOGLOBINURIA
     Dosage: 600 MG, QW
     Route: 042
     Dates: start: 20120411, end: 20120509
  12. SANCTURA [Concomitant]
     Dosage: 60 MG, QD EVERY MORNING
     Route: 048
  13. AMBIEN [Concomitant]
     Indication: INSOMNIA
     Dosage: 5 MG, QD AT BEDTIME PRN
     Route: 048
  14. COREG [Concomitant]
     Indication: HYPERTENSION
     Dosage: 25 MG, BID
     Route: 048
  15. SOLIRIS [Suspect]
     Dosage: 900 MG, Q2W
     Route: 042
     Dates: start: 20120509
  16. CITALOPRAM HYDROBROMIDE [Concomitant]
     Indication: DEPRESSION
     Dosage: 20 MG, QD AT BEDTIME
     Route: 048
  17. FOLIC ACID [Concomitant]
     Dosage: 400 MG, QD AT BEDTIME
     Route: 048
  18. LASIX [Concomitant]
     Indication: HYPERTENSION
     Dosage: 40 MG, QD
     Route: 048
  19. MEGA-RED [Concomitant]
     Dosage: 300 MG, QD AT BEDTIME
     Route: 048
  20. COUMADIN [Suspect]
     Indication: ATRIAL FIBRILLATION
     Dosage: 5 MG, QD
     Route: 048
  21. COLCHICINE [Concomitant]
     Dosage: 0.6 MG, QD IN THE EVENING
     Route: 048
  22. DICYCLOMINE [Concomitant]
     Dosage: 20 MG, TID
     Route: 048
  23. FERROUS SULFATE TAB [Concomitant]
     Dosage: 325 MG, QD AT BEDTIME
     Route: 048
  24. IMODIUM [Concomitant]
     Dosage: 2 MG (3 TABLETS), QD
     Route: 048
  25. DONEPEZIL HCL [Concomitant]
     Dosage: 10 MG, QD
     Route: 048
  26. ACETAMINOPHEN [Concomitant]
     Dosage: 500 MG, TID
     Route: 048
  27. ASCORBIC ACID [Concomitant]
     Dosage: 5 MG, BID
     Route: 048
  28. REQUIP [Concomitant]
     Dosage: 0.5 MG, BID
     Route: 048
  29. REQUIP [Concomitant]
     Dosage: 1 MG, QD AT BEDTIME
     Route: 048
  30. DILTIAZEM [Concomitant]
     Indication: HYPERTENSION
     Dosage: 240 MG, BID
     Route: 048
  31. MULTI-VITAMIN [Concomitant]
     Dosage: 1 DF, QD EVENING
     Route: 048

REACTIONS (19)
  - MITRAL VALVE STENOSIS [None]
  - HYPOTHYROIDISM [None]
  - ESCHERICHIA URINARY TRACT INFECTION [None]
  - NORMAL PRESSURE HYDROCEPHALUS [None]
  - LUMBAR VERTEBRAL FRACTURE [None]
  - RESTLESS LEGS SYNDROME [None]
  - INTERNATIONAL NORMALISED RATIO INCREASED [None]
  - DEMENTIA ALZHEIMER'S TYPE [None]
  - THROMBOCYTOPENIA [None]
  - HYPERTENSION [None]
  - FALL [None]
  - PNEUMONIA PRIMARY ATYPICAL [None]
  - ATRIAL FIBRILLATION [None]
  - GOUT [None]
  - DEPRESSION [None]
  - ASTHENIA [None]
  - RENAL FAILURE CHRONIC [None]
  - CONTUSION [None]
  - BALANCE DISORDER [None]
